FAERS Safety Report 18256395 (Version 2)
Quarter: 2020Q4

REPORT INFORMATION
  Report Type: Report from Study
  Country: DE (occurrence: DE)
  Receive Date: 20200911
  Receipt Date: 20201021
  Transmission Date: 20210113
  Serious: Yes (Hospitalization)
  Sender: FDA-Public Use
  Company Number: DE-ROCHE-2673761

PATIENT
  Age: 56 Year
  Sex: Female
  Weight: 75 kg

DRUGS (3)
  1. PACLITAXEL. [Suspect]
     Active Substance: PACLITAXEL
     Indication: TRIPLE NEGATIVE BREAST CANCER
     Dosage: ON 17/JUL/2020, SHE  RECEIVED LAST DOSE OF PACLITAXEL OF 80 MG/M2 PRIOR TO SERIOUS ADVERSE EVENT
     Route: 042
     Dates: start: 20200511
  2. CARBOPLATIN. [Suspect]
     Active Substance: CARBOPLATIN
     Indication: TRIPLE NEGATIVE BREAST CANCER
     Dosage: ON 03/JUL/2020, SHE RECEIVED LAST DOSE OF CARBOPLATIN OF 5 AUC PRIOR TO SERIOUS ADVERSE EVENT
     Route: 042
     Dates: start: 20200511
  3. BLINDED ATEZOLIZUMAB [Suspect]
     Active Substance: ATEZOLIZUMAB
     Indication: TRIPLE NEGATIVE BREAST CANCER
     Dosage: ON 03/JUL/2020, SHE RECEIVED LAST DOSE OF ATEZOLIZUMAB PRIOR TO SERIOUS ADVERSE EVENT.
     Route: 042
     Dates: start: 20200511

REACTIONS (1)
  - Anaemia [Recovered/Resolved]

NARRATIVE: CASE EVENT DATE: 20200723
